FAERS Safety Report 16976170 (Version 2)
Quarter: 2019Q4

REPORT INFORMATION
  Report Type: Spontaneous
  Country: US (occurrence: US)
  Receive Date: 20191030
  Receipt Date: 20191118
  Transmission Date: 20200122
  Serious: Yes (Other)
  Sender: FDA-Public Use
  Company Number: US-JNJFOC-20191034760

PATIENT
  Age: 60 Year
  Sex: Female
  Weight: 118.04 kg

DRUGS (1)
  1. XARELTO [Suspect]
     Active Substance: RIVAROXABAN
     Indication: PRODUCT USED FOR UNKNOWN INDICATION
     Route: 048
     Dates: start: 20191009

REACTIONS (3)
  - Anxiety [Unknown]
  - Haemorrhage [Recovered/Resolved]
  - Product label issue [Unknown]

NARRATIVE: CASE EVENT DATE: 20191021
